FAERS Safety Report 5634629-X (Version None)
Quarter: 2008Q1

REPORT INFORMATION
  Report Type: 
  Country: None (occurrence: None)
  Receive Date: 20080131
  Receipt Date: 20071126
  Transmission Date: 20080703
  Serious: No
  Sender: FDA-Public Use
  Company Number: 163-21880-07111426

PATIENT
  Age: 63 Year
  Sex: Female

DRUGS (4)
  1. REVLIMID [Suspect]
     Indication: MULTIPLE MYELOMA
     Dosage: 25 MG, 1 IN 1 D
     Dates: start: 20070801
  2. DECADRON [Concomitant]
  3. COUMADIN [Concomitant]
  4. MULTIVITAMIN [Concomitant]

REACTIONS (1)
  - NASAL ULCER [None]
